FAERS Safety Report 9640063 (Version 2)
Quarter: 2013Q4

REPORT INFORMATION
  Report Type: Spontaneous
  Country: IT (occurrence: IT)
  Receive Date: 20131023
  Receipt Date: 20131029
  Transmission Date: 20140711
  Serious: Yes (Hospitalization)
  Sender: FDA-Public Use
  Company Number: PHHY2013IT118998

PATIENT
  Age: 78 Year
  Sex: Male

DRUGS (7)
  1. TEGRETOL [Suspect]
     Indication: CONVULSION
     Dosage: 2 DF, DAILY
     Route: 048
     Dates: start: 20130101, end: 20130919
  2. AZARGA [Concomitant]
     Indication: GLAUCOMA
     Dosage: UNK UKN, UNK
  3. ADALAT CRONO [Concomitant]
     Dosage: 1 DF, UNK
     Route: 048
  4. CARDURA [Concomitant]
     Dosage: UNK UKN, UNK
     Route: 048
  5. ANDROCUR [Concomitant]
     Dosage: UNK UKN, UNK
     Route: 048
  6. AVODART [Concomitant]
     Dosage: UNK UKN, UNK
     Route: 048
  7. SIMESTAT [Concomitant]
     Dosage: UNK UKN, UNK
     Route: 048

REACTIONS (4)
  - Disorientation [Unknown]
  - Delirium [Unknown]
  - Confusional state [Unknown]
  - Hyponatraemic syndrome [Unknown]
